FAERS Safety Report 6942586-9 (Version None)
Quarter: 2010Q3

REPORT INFORMATION
  Report Type: 
  Country: None (occurrence: None)
  Receive Date: 20100826
  Receipt Date: 20100824
  Transmission Date: 20110219
  Serious: Yes (Life-Threatening)
  Sender: FDA-Public Use
  Company Number: AU-B.I. PHARMACEUTICALS,INC./RIDGEFIELD-2010-AU-00601AU

PATIENT
  Sex: Male
  Weight: 82 kg

DRUGS (5)
  1. MICARDIS [Suspect]
     Indication: HYPERTENSION
     Dates: start: 20060101, end: 20100601
  2. ACE INHIBITOR [Concomitant]
  3. ASPIRIN [Concomitant]
     Dates: start: 20060101, end: 20100101
  4. LIPITOR [Concomitant]
     Dates: start: 20060101, end: 20100101
  5. CRESTOR [Concomitant]
     Dates: start: 20060101, end: 20100101

REACTIONS (1)
  - NON-SMALL CELL LUNG CANCER STAGE IV [None]
